FAERS Safety Report 4851840-6 (Version None)
Quarter: 2005Q4

REPORT INFORMATION
  Report Type: 
  Country: None (occurrence: None)
  Receive Date: 20051209
  Receipt Date: 20051130
  Transmission Date: 20060501
  Serious: Yes (Other)
  Sender: FDA-Public Use
  Company Number: 2005162255

PATIENT
  Sex: Female
  Weight: 58.9676 kg

DRUGS (5)
  1. CELEBREX [Suspect]
     Indication: ARTHRITIS
     Dosage: 200 MG (200 MG, 1 IN 1 D)
  2. COREG [Suspect]
     Indication: ILL-DEFINED DISORDER
     Dosage: 3.125 MG
  3. ALL OTHER THERAPEUTIC PRODUCTS (ALL OTHER THERAPEUTIC PRODUCTS) [Concomitant]
  4. ASPIRIN [Concomitant]
  5. ENALAPRIL MALEATE [Concomitant]

REACTIONS (4)
  - BODY HEIGHT DECREASED [None]
  - CARDIAC DISORDER [None]
  - DIZZINESS [None]
  - FEELING HOT [None]
